FAERS Safety Report 5419359-1 (Version None)
Quarter: 2007Q3

REPORT INFORMATION
  Report Type: 
  Country: None (occurrence: None)
  Receive Date: 20070816
  Receipt Date: 20070816
  Transmission Date: 20080115
  Serious: Yes (Hospitalization)
  Sender: FDA-Public Use
  Company Number: None

PATIENT
  Age: 81 Year
  Sex: Female

DRUGS (6)
  1. EXJADE [Suspect]
     Indication: IRON OVERLOAD
  2. PREVACID [Concomitant]
  3. FOLIC ACID [Concomitant]
  4. METOPROLOL SUCCINATE [Concomitant]
  5. AMBIEN [Concomitant]
  6. URSODIOL [Concomitant]

REACTIONS (1)
  - IRON OVERLOAD [None]
